FAERS Safety Report 8422304-8 (Version None)
Quarter: 2012Q2

REPORT INFORMATION
  Report Type: 
  Country: None (occurrence: None)
  Receive Date: 20120608
  Receipt Date: 20120601
  Transmission Date: 20120825
  Serious: Yes (Other)
  Sender: FDA-Public Use
  Company Number: DE-B.I. PHARMACEUTICALS,INC./RIDGEFIELD-2012-DE-01223DE

PATIENT
  Sex: Female
  Weight: 69.8 kg

DRUGS (8)
  1. GLIMITERID [Concomitant]
  2. CITALOPRAM HYDROBROMIDE [Concomitant]
  3. TORSEMIDE [Concomitant]
  4. PRADAXA [Suspect]
     Indication: PRODUCT SUBSTITUTION ISSUE
     Dosage: 220 MG
     Dates: start: 20120330, end: 20120507
  5. ATARAX [Concomitant]
  6. PRADAXA [Suspect]
     Indication: ILL-DEFINED DISORDER
  7. LEVOTHYROXINE SODIUM [Concomitant]
  8. PANTOPRAZOLE [Concomitant]

REACTIONS (1)
  - HALLUCINATION [None]
